FAERS Safety Report 17652628 (Version 1)
Quarter: 2020Q2

REPORT INFORMATION
  Report Type: Report from Study
  Country: US (occurrence: US)
  Receive Date: 20200409
  Receipt Date: 20200409
  Transmission Date: 20200713
  Serious: Yes (Death, Hospitalization)
  Sender: FDA-Public Use
  Company Number: US-ACTELION-A-NJ2020-203975

PATIENT
  Age: 85 Year
  Sex: Female

DRUGS (1)
  1. OPSUMIT [Suspect]
     Active Substance: MACITENTAN
     Indication: PULMONARY HYPERTENSION
     Dosage: UNK
     Route: 048
     Dates: start: 202003

REACTIONS (6)
  - Cardiac failure [Fatal]
  - Post procedural complication [Fatal]
  - Hospice care [Unknown]
  - Arteriovenous fistula operation [Fatal]
  - General physical health deterioration [Unknown]
  - Dialysis [Unknown]

NARRATIVE: CASE EVENT DATE: 202003
